FAERS Safety Report 14364292 (Version 1)
Quarter: 2018Q1

REPORT INFORMATION
  Report Type: Spontaneous
  Country: US (occurrence: US)
  Receive Date: 20180108
  Receipt Date: 20180108
  Transmission Date: 20180509
  Serious: No
  Sender: FDA-Public Use
  Company Number: US-SUNOVION-2017SUN005528

PATIENT
  Sex: Female
  Weight: 67.12 kg

DRUGS (1)
  1. ESZOPICLONE. [Suspect]
     Active Substance: ESZOPICLONE
     Indication: INSOMNIA
     Dosage: 2 MG, AS NECESSARY
     Route: 048

REACTIONS (3)
  - Insomnia [Unknown]
  - Dysgeusia [Unknown]
  - Drug ineffective [Unknown]
